FAERS Safety Report 18211129 (Version 8)
Quarter: 2022Q1

REPORT INFORMATION
  Report Type: Report from Study
  Country: IT (occurrence: None)
  Receive Date: 20200830
  Receipt Date: 20220314
  Transmission Date: 20220423
  Serious: Yes (Hospitalization)
  Sender: FDA-Public Use
  Company Number: IT-ROCHE-2664588

PATIENT
  Age: 41 Year
  Sex: Male
  Weight: 81 kg

DRUGS (4)
  1. INVESTIGATIONAL PRODUCT [Suspect]
     Active Substance: INVESTIGATIONAL PRODUCT
     Indication: Neoplasm
     Dosage: START DATE OF MOST RECENT DOSE OF STUDY DRUG PRIOR TO SAE/AE: 17-AUG-2020 2:00 PM (TOTAL VOLUME 50ML
     Route: 041
     Dates: start: 20200810
  2. ATEZOLIZUMAB [Suspect]
     Active Substance: ATEZOLIZUMAB
     Indication: Neoplasm
     Dosage: START DATE OF MOST RECENT DOSE OF STUDY DRUG PRIOR TO SAE: 10/AUG/2020 10:28 AM?END DATE OF MOST REC
     Route: 041
     Dates: start: 20200810
  3. PREDNISONE [Concomitant]
     Active Substance: PREDNISONE
     Indication: Neutropenia
     Dates: start: 20200904
  4. OMEPRAZOLE [Concomitant]
     Active Substance: OMEPRAZOLE
     Indication: Gastrointestinal disorder prophylaxis
     Dates: start: 20200904

REACTIONS (1)
  - Febrile neutropenia [Recovered/Resolved]

NARRATIVE: CASE EVENT DATE: 20200821
